FAERS Safety Report 5470665-4 (Version None)
Quarter: 2007Q3

REPORT INFORMATION
  Report Type: 
  Country: None (occurrence: None)
  Receive Date: 20070928
  Receipt Date: 20070925
  Transmission Date: 20080115
  Serious: Yes (Life-Threatening, Other)
  Sender: FDA-Public Use
  Company Number: HQWYE803824APR07

PATIENT
  Sex: Male
  Weight: 122.99 kg

DRUGS (4)
  1. TIGECYCLINE [Suspect]
     Indication: ABDOMINAL ABSCESS
     Dosage: 100 MG LOADING DOSE, THEN 50 MG EVERY 12 HOURS
     Route: 042
     Dates: start: 20070416, end: 20070429
  2. LOVENOX [Concomitant]
     Indication: PULMONARY EMBOLISM
     Dosage: 120 MG DAILY
     Route: 058
     Dates: start: 20070420
  3. MYCELEX [Concomitant]
     Indication: CANDIDIASIS
     Dosage: ONE PER DAY
     Route: 048
     Dates: start: 20070426, end: 20070507
  4. COUMADIN [Concomitant]
     Indication: PULMONARY EMBOLISM
     Dosage: TITRATED UP TO 20 MG DAILY
     Route: 048
     Dates: start: 20070420

REACTIONS (2)
  - HEPATITIS CHOLESTATIC [None]
  - PULMONARY EMBOLISM [None]
